FAERS Safety Report 4977558-7 (Version None)
Quarter: 2006Q2

REPORT INFORMATION
  Report Type: 
  Country: None (occurrence: None)
  Receive Date: 20060414
  Receipt Date: 20060407
  Transmission Date: 20061013
  Serious: Yes (Death)
  Sender: FDA-Public Use
  Company Number: 200612285BWH

PATIENT
  Age: 36 Year
  Sex: Female

DRUGS (14)
  1. NEXAVAR [Suspect]
     Indication: NASAL SINUS CANCER
     Dosage: 400 MG, BID, ORAL
     Route: 048
     Dates: start: 20060201, end: 20060317
  2. OXYCONTIN [Concomitant]
  3. OXYCODONE [Concomitant]
  4. ZOFRAN [Concomitant]
  5. LEVAQUIN [Concomitant]
  6. AUGMENTIN '125' [Concomitant]
  7. DECADRON [Concomitant]
  8. SENNA [Concomitant]
  9. ATROVENT [Concomitant]
  10. BENADRYL [Concomitant]
  11. LASIX [Concomitant]
  12. POTASSIUM [Concomitant]
  13. CODEINE [Concomitant]
  14. OXYGEN [Concomitant]

REACTIONS (2)
  - DIARRHOEA [None]
  - SINUS CANCER METASTATIC [None]
